FAERS Safety Report 6768225-8 (Version None)
Quarter: 2010Q2

REPORT INFORMATION
  Report Type: 
  Country: None (occurrence: None)
  Receive Date: 20100614
  Receipt Date: 20100602
  Transmission Date: 20101027
  Serious: Yes (Other)
  Sender: FDA-Public Use
  Company Number: US-PFIZER INC-2010070021

PATIENT
  Sex: Female
  Weight: 51.24 kg

DRUGS (5)
  1. CHANTIX [Suspect]
     Indication: SMOKING CESSATION THERAPY
     Dosage: 0.5 MG, 1X/DAY
     Route: 048
     Dates: start: 20100501
  2. CHANTIX [Suspect]
     Dosage: 1 MG, 2X/DAY
     Dates: start: 20100601
  3. BUPROPION [Concomitant]
     Dosage: UNK
  4. WELLBUTRIN [Concomitant]
     Indication: STRESS
  5. WELLBUTRIN [Concomitant]
     Indication: ANXIETY

REACTIONS (2)
  - NERVOUSNESS [None]
  - SKIN EXFOLIATION [None]
